FAERS Safety Report 4855960-1 (Version None)
Quarter: 2005Q4

REPORT INFORMATION
  Report Type: 
  Country: None (occurrence: None)
  Receive Date: 20051216
  Receipt Date: 19970603
  Transmission Date: 20060501
  Serious: Yes (Life-Threatening)
  Sender: FDA-Public Use
  Company Number: CA-GLAXOSMITHKLINE-A0263180A

PATIENT
  Age: 32 Year
  Sex: Male
  Weight: 82.54 kg

DRUGS (1)
  1. PAROXETINE HCL [Suspect]
     Indication: DEPRESSION
     Dosage: 20MG PER DAY
     Route: 048
     Dates: start: 19970307, end: 19970530

REACTIONS (2)
  - DEPRESSION [None]
  - SUICIDE ATTEMPT [None]
